FAERS Safety Report 7215709-4 (Version None)
Quarter: 2011Q1

REPORT INFORMATION
  Report Type: 
  Country: None (occurrence: None)
  Receive Date: 20110107
  Receipt Date: 20101230
  Transmission Date: 20110831
  Serious: Yes (Other)
  Sender: FDA-Public Use
  Company Number: PT-JNJFOC-20101207403

PATIENT
  Age: 28 Year
  Sex: Male

DRUGS (3)
  1. IMURAN [Concomitant]
  2. REMICADE [Suspect]
     Indication: CROHN'S DISEASE
     Dosage: 3RD INDUCTION INFUSION
     Route: 042
  3. MESALAMINE [Concomitant]

REACTIONS (4)
  - PARAESTHESIA [None]
  - ANAL ABSCESS [None]
  - HYPERSENSITIVITY [None]
  - PSORIASIS [None]
